FAERS Safety Report 7419513-3 (Version None)
Quarter: 2011Q2

REPORT INFORMATION
  Report Type: 
  Country: None (occurrence: None)
  Receive Date: 20110412
  Receipt Date: 20110412
  Transmission Date: 20111010
  Serious: Yes (Other)
  Sender: FDA-Public Use
  Company Number: None

PATIENT
  Sex: Male

DRUGS (4)
  1. METOPROLOL [Concomitant]
  2. PRADAXA [Suspect]
     Indication: ATRIAL FIBRILLATION
     Dosage: 150 MG BID PO
     Route: 048
     Dates: start: 20110317, end: 20110411
  3. CARTIA XT [Concomitant]
  4. METFORMIN [Concomitant]

REACTIONS (4)
  - MYALGIA [None]
  - ARTHRALGIA [None]
  - MUSCLE SPASMS [None]
  - MIDDLE INSOMNIA [None]
